FAERS Safety Report 4486613-X (Version None)
Quarter: 2004Q4

REPORT INFORMATION
  Report Type: 
  Country: None (occurrence: None)
  Receive Date: 20041019
  Receipt Date: 20041005
  Transmission Date: 20050328
  Serious: Yes (Other)
  Sender: FDA-Public Use
  Company Number: HQ9641026DEC2001

PATIENT
  Age: 39 Year
  Sex: Male

DRUGS (9)
  1. REFACTO [Suspect]
     Indication: FACTOR VIII DEFICIENCY
     Dosage: 4 IU/KG/HR
     Route: 042
     Dates: start: 20010122, end: 20010208
  2. ACETAMINOPHEN [Concomitant]
  3. TRAMADOL HCL [Concomitant]
  4. CLOXACILLIN (CLOXACILLIN) [Concomitant]
  5. TETRAZEPAM (TETRAZEPAM) [Concomitant]
  6. MORPHINE SULFATE [Concomitant]
  7. SUFENTANIL CITRATE [Concomitant]
  8. PROPOFOL [Concomitant]
  9. CISATRACURIUM (CISATRACURIUM) [Concomitant]

REACTIONS (2)
  - ANAEMIA POSTOPERATIVE [None]
  - COAGULATION FACTOR VIII LEVEL DECREASED [None]
